FAERS Safety Report 7117981-8 (Version None)
Quarter: 2010Q4

REPORT INFORMATION
  Report Type: 
  Country: None (occurrence: None)
  Receive Date: 20101123
  Receipt Date: 20101108
  Transmission Date: 20110411
  Serious: Yes (Other)
  Sender: FDA-Public Use
  Company Number: JP-PFIZER INC-2010138603

PATIENT
  Age: 75 Year
  Sex: Female

DRUGS (6)
  1. LIPITOR [Suspect]
     Dosage: UNK
     Route: 048
  2. GASTER [Suspect]
     Dosage: 20 MG, 1X/DAY
     Route: 048
     Dates: start: 20080301
  3. OLMETEC [Concomitant]
     Dosage: UNK
  4. BASEN [Concomitant]
     Dosage: UNK
  5. ATELEC [Concomitant]
     Dosage: UNK
  6. ASPIRIN [Concomitant]
     Dosage: UNK

REACTIONS (1)
  - ALTERED STATE OF CONSCIOUSNESS [None]
